FAERS Safety Report 10274161 (Version 1)
Quarter: 2014Q3

REPORT INFORMATION
  Report Type: Report from Study
  Country: BE (occurrence: BE)
  Receive Date: 20140702
  Receipt Date: 20140702
  Transmission Date: 20150326
  Serious: Yes (Other)
  Sender: FDA-Public Use
  Company Number: BE-TEVA-491974USA

PATIENT
  Age: 76 Year
  Sex: Male

DRUGS (4)
  1. RITUXIMAB [Suspect]
     Active Substance: RITUXIMAB
     Indication: PRODUCT USED FOR UNKNOWN INDICATION
     Dosage: 1 X EVERY 3 WEEKS
     Route: 042
     Dates: start: 20120625, end: 20121113
  2. BENDAMUSTINE HYDROCHLORIDE [Suspect]
     Active Substance: BENDAMUSTINE HYDROCHLORIDE
     Indication: PRODUCT USED FOR UNKNOWN INDICATION
     Dosage: 1 X EVERY 4 WEEKS
     Route: 042
     Dates: start: 20120625
  3. RITUXIMAB [Suspect]
     Active Substance: RITUXIMAB
     Dosage: 1 X 2 MONTHS
     Route: 042
     Dates: start: 20131128
  4. RITUXIMAB [Suspect]
     Active Substance: RITUXIMAB
     Dosage: 1 X 12 MONTHS
     Route: 042
     Dates: start: 20130103

REACTIONS (1)
  - Cholecystitis [Recovered/Resolved]

NARRATIVE: CASE EVENT DATE: 20131231
